FAERS Safety Report 7895293-2 (Version None)
Quarter: 2011Q4

REPORT INFORMATION
  Report Type: 
  Country: None (occurrence: None)
  Receive Date: 20111106
  Receipt Date: 20110825
  Transmission Date: 20120403
  Serious: No
  Sender: FDA-Public Use
  Company Number: US-AMGEN-USASP2011040870

PATIENT
  Age: 30 Year
  Sex: Female
  Weight: 93.878 kg

DRUGS (2)
  1. ENBREL [Suspect]
     Indication: RHEUMATOID ARTHRITIS
     Dosage: 50 MG, QWK
     Route: 030
     Dates: start: 20110607
  2. ARAVA [Concomitant]
     Dosage: 1 MG, QD
     Dates: start: 20110607

REACTIONS (5)
  - WISDOM TEETH REMOVAL [None]
  - INJECTION SITE WARMTH [None]
  - SWELLING FACE [None]
  - INJECTION SITE ERYTHEMA [None]
  - INJECTION SITE SWELLING [None]
